FAERS Safety Report 25561715 (Version 4)
Quarter: 2025Q3

REPORT INFORMATION
  Report Type: Report from Study
  Country: US (occurrence: US)
  Receive Date: 20250716
  Receipt Date: 20250819
  Transmission Date: 20251021
  Serious: Yes (Death, Other)
  Sender: ACADIA PHARMACEUTICALS
  Company Number: US-ACADIA PHARMACEUTICALS INC.-ACA-2025-PIM-008237

PATIENT
  Sex: Male

DRUGS (12)
  1. NUPLAZID [Suspect]
     Active Substance: PIMAVANSERIN TARTRATE
     Indication: Parkinson^s disease
     Dosage: 34 MILLIGRAM, QD (NIGHTLY)
     Route: 048
     Dates: start: 202402
  2. MIRALAX [Concomitant]
     Active Substance: POLYETHYLENE GLYCOL 3350
  3. DUTASTERIDE [Concomitant]
     Active Substance: DUTASTERIDE
  4. LOSARTAN [Concomitant]
     Active Substance: LOSARTAN
  5. RYTARY [Concomitant]
     Active Substance: CARBIDOPA\LEVODOPA
  6. MYRBETRIQ [Concomitant]
     Active Substance: MIRABEGRON
  7. GABAPENTIN [Concomitant]
     Active Substance: GABAPENTIN
  8. ASPIRIN [Concomitant]
     Active Substance: ASPIRIN
  9. RIVASTIGMINE [Concomitant]
     Active Substance: RIVASTIGMINE
  10. TRAMADOL [Concomitant]
     Active Substance: TRAMADOL
  11. FUROSEMIDE [Concomitant]
     Active Substance: FUROSEMIDE
  12. BROMPHENIRAMINE\PSEUDOEPHEDRINE [Concomitant]
     Active Substance: BROMPHENIRAMINE\PSEUDOEPHEDRINE

REACTIONS (1)
  - Parkinson^s disease psychosis [Fatal]
